FAERS Safety Report 23146091 (Version 3)
Quarter: 2023Q4

REPORT INFORMATION
  Report Type: Spontaneous
  Country: US (occurrence: US)
  Receive Date: 20231104
  Receipt Date: 20231123
  Transmission Date: 20240110
  Serious: No
  Sender: FDA-Public Use
  Company Number: US-002147023-NVSC2023US236433

PATIENT
  Age: 77 Year
  Sex: Male

DRUGS (4)
  1. KISQALI FEMARA CO-PACK [Suspect]
     Active Substance: LETROZOLE\RIBOCICLIB
     Indication: Breast cancer male
     Dosage: 600 MG, 21D
     Route: 048
     Dates: start: 20230506
  2. KISQALI FEMARA CO-PACK [Suspect]
     Active Substance: LETROZOLE\RIBOCICLIB
     Dosage: UNK (3 KISQALI QD FOR 21D, 1 FEMARA QD FOR 28D)
     Route: 048
     Dates: start: 20230506
  3. KISQALI FEMARA CO-PACK [Suspect]
     Active Substance: LETROZOLE\RIBOCICLIB
     Indication: Breast cancer male
     Dosage: 600 MG, 21D
     Route: 048
     Dates: start: 20230506
  4. KISQALI FEMARA CO-PACK [Suspect]
     Active Substance: LETROZOLE\RIBOCICLIB
     Dosage: UNK (3 KISQALI QD FOR 21D, 1 FEMARA QD FOR 28D)
     Route: 048
     Dates: start: 20230506

REACTIONS (2)
  - Diarrhoea [Recovered/Resolved]
  - Fatigue [Not Recovered/Not Resolved]

NARRATIVE: CASE EVENT DATE: 20230718
